FAERS Safety Report 6343905-7 (Version None)
Quarter: 2009Q3

REPORT INFORMATION
  Report Type: 
  Country: None (occurrence: None)
  Receive Date: 20090908
  Receipt Date: 20090826
  Transmission Date: 20100115
  Serious: Yes (Other)
  Sender: FDA-Public Use
  Company Number: JP-PFIZER INC-2009244187

PATIENT
  Age: 24 Year

DRUGS (3)
  1. ZOLOFT [Suspect]
     Indication: DEPRESSION
     Dosage: 25 MG A DAY
     Route: 048
     Dates: start: 20090630, end: 20090706
  2. ZOLOFT [Suspect]
     Dosage: 50 MG/DAY
     Route: 048
     Dates: start: 20090710, end: 20090714
  3. ZYPREXA [Concomitant]
     Indication: MANIA
     Route: 048
     Dates: start: 20090706, end: 20090710

REACTIONS (3)
  - BIPOLAR DISORDER [None]
  - INSOMNIA [None]
  - MANIA [None]
